FAERS Safety Report 4482478-0 (Version None)
Quarter: 2004Q4

REPORT INFORMATION
  Report Type: 
  Country: None (occurrence: None)
  Receive Date: 20041022
  Receipt Date: 20041013
  Transmission Date: 20050328
  Serious: Yes (Other)
  Sender: FDA-Public Use
  Company Number: JP-GLAXOSMITHKLINE-B0348711A

PATIENT
  Age: 44 Year
  Sex: Female

DRUGS (1)
  1. ESKAZOLE [Suspect]
     Route: 048
     Dates: start: 19960101

REACTIONS (1)
  - CONVULSION [None]
